FAERS Safety Report 4644643-9 (Version None)
Quarter: 2005Q2

REPORT INFORMATION
  Report Type: 
  Country: None (occurrence: None)
  Receive Date: 20050425
  Receipt Date: 20050425
  Transmission Date: 20051028
  Serious: Yes (Other)
  Sender: FDA-Public Use
  Company Number: None

PATIENT
  Sex: Female
  Weight: 92.9874 kg

DRUGS (2)
  1. EFFEXOR XR [Suspect]
     Indication: ANXIETY
     Dosage: 75MG   DAILY   ORAL
     Route: 048
     Dates: start: 20040501, end: 20050422
  2. EFFEXOR XR [Suspect]
     Indication: DEPRESSION
     Dosage: 75MG   DAILY   ORAL
     Route: 048
     Dates: start: 20040501, end: 20050422

REACTIONS (5)
  - DIZZINESS [None]
  - DRUG WITHDRAWAL SYNDROME [None]
  - LOSS OF CONSCIOUSNESS [None]
  - VOMITING [None]
  - WEIGHT INCREASED [None]
